FAERS Safety Report 18737168 (Version 1)
Quarter: 2021Q1

REPORT INFORMATION
  Report Type: Spontaneous
  Country: US (occurrence: US)
  Receive Date: 20210113
  Receipt Date: 20210113
  Transmission Date: 20210419
  Serious: Yes (Hospitalization, Other)
  Sender: FDA-Public Use
  Company Number: US-PFIZER INC-2021013768

PATIENT
  Age: 56 Year
  Sex: Female
  Weight: 99.77 kg

DRUGS (4)
  1. ELIQUIS [Concomitant]
     Active Substance: APIXABAN
     Dosage: 2.5 MG
  2. IBRANCE [Suspect]
     Active Substance: PALBOCICLIB
     Indication: BREAST CANCER FEMALE
     Dosage: 100 MG, CYCLIC (1 DAILY FOR 21 DAYS)
     Route: 048
     Dates: start: 2020
  3. GABAPENTIN. [Concomitant]
     Active Substance: GABAPENTIN
     Dosage: UNK (GABAPENTIN 100 % POWDER)
  4. LETROZOLE. [Concomitant]
     Active Substance: LETROZOLE
     Dosage: UNK (LETROZOLE 100 % POWDER)

REACTIONS (6)
  - Full blood count decreased [Unknown]
  - Weight increased [Unknown]
  - Anosmia [Unknown]
  - Thrombosis [Unknown]
  - Ageusia [Unknown]
  - Pain [Unknown]

NARRATIVE: CASE EVENT DATE: 2020
